FAERS Safety Report 6197653-7 (Version None)
Quarter: 2009Q2

REPORT INFORMATION
  Report Type: 
  Country: None (occurrence: None)
  Receive Date: 20090514
  Receipt Date: 20090130
  Transmission Date: 20091009
  Serious: Yes (Hospitalization)
  Sender: FDA-Public Use
  Company Number: 612111

PATIENT
  Age: 11 Year
  Sex: Male

DRUGS (1)
  1. KYTRIL [Suspect]
     Indication: MITOCHONDRIAL CYTOPATHY

REACTIONS (1)
  - VOMITING [None]
